FAERS Safety Report 9886972 (Version 1)
Quarter: 2014Q1

REPORT INFORMATION
  Report Type: Spontaneous
  Country: GB (occurrence: GB)
  Receive Date: 20140211
  Receipt Date: 20140211
  Transmission Date: 20141002
  Serious: Yes (Other)
  Sender: FDA-Public Use
  Company Number: GB-ROCHE-1347258

PATIENT
  Age: 59 Year
  Sex: Male

DRUGS (1)
  1. ALTEPLASE [Suspect]
     Indication: LACUNAR INFARCTION
     Route: 042

REACTIONS (5)
  - Extradural haematoma [Unknown]
  - Spinal cord compression [Unknown]
  - Anuria [Unknown]
  - Myelopathy [Unknown]
  - Paraesthesia [Unknown]
